FAERS Safety Report 23571399 (Version 2)
Quarter: 2024Q1

REPORT INFORMATION
  Report Type: Report from Study
  Country: FR (occurrence: FR)
  Receive Date: 20240227
  Receipt Date: 20240311
  Transmission Date: 20240410
  Serious: Yes (Hospitalization, Other)
  Sender: FDA-Public Use
  Company Number: FR-002147023-NVSC2024FR031106

PATIENT
  Age: 3 Year
  Weight: 16 kg

DRUGS (11)
  1. SIROLIMUS [Suspect]
     Active Substance: SIROLIMUS
     Indication: Product used for unknown indication
     Dosage: 0.1 MG/KG, 1X/DAY
     Route: 065
     Dates: start: 20230706, end: 20240124
  2. MAS-825 [Suspect]
     Active Substance: MAS-825
     Indication: Still^s disease
     Dosage: UNK
     Route: 065
     Dates: start: 20230510
  3. MAS-825 [Suspect]
     Active Substance: MAS-825
     Dosage: 10 MG/KG, EVERY 15 DAY
     Route: 042
  4. ILARIS [Suspect]
     Active Substance: CANAKINUMAB
     Indication: Still^s disease
     Dosage: UNK
     Route: 065
     Dates: start: 20230204, end: 20230422
  5. ILARIS [Suspect]
     Active Substance: CANAKINUMAB
     Dosage: UNK
     Route: 065
     Dates: start: 20230727
  6. ILARIS [Suspect]
     Active Substance: CANAKINUMAB
     Dosage: 75 MG
     Route: 058
     Dates: start: 20240204, end: 20240204
  7. ILARIS [Suspect]
     Active Substance: CANAKINUMAB
     Dosage: UNK ON 04 MAR
     Route: 065
  8. RUXOLITINIB [Concomitant]
     Active Substance: RUXOLITINIB
     Dosage: UNK
     Route: 065
     Dates: start: 20230118, end: 20230324
  9. NEORAL [Concomitant]
     Active Substance: CYCLOSPORINE
     Dosage: UNK
     Route: 065
     Dates: start: 20230607, end: 20230711
  10. PREDNISONE [Concomitant]
     Active Substance: PREDNISONE
     Dosage: 22.5 MG, 1X/DAY
     Route: 065
  11. BARICITINIB [Concomitant]
     Active Substance: BARICITINIB
     Dosage: UNK
     Route: 065

REACTIONS (3)
  - Juvenile idiopathic arthritis [Unknown]
  - Pneumonia pneumococcal [Recovered/Resolved]
  - Empyema [Unknown]

NARRATIVE: CASE EVENT DATE: 20240101
